FAERS Safety Report 6655539-5 (Version None)
Quarter: 2010Q1

REPORT INFORMATION
  Report Type: 
  Country: None (occurrence: None)
  Receive Date: 20100329
  Receipt Date: 20100319
  Transmission Date: 20100710
  Serious: Yes (Death, Other)
  Sender: FDA-Public Use
  Company Number: NL-ABBOTT-09P-114-0610398-00

PATIENT
  Sex: Male
  Weight: 89.7 kg

DRUGS (6)
  1. HUMIRA [Suspect]
     Indication: PSORIASIS
     Route: 058
     Dates: start: 20090202, end: 20090209
  2. HUMIRA [Suspect]
     Route: 058
     Dates: start: 20090209, end: 20090806
  3. HUMIRA [Suspect]
     Route: 058
     Dates: start: 20090806, end: 20091008
  4. HUMIRA [Suspect]
     Route: 058
     Dates: start: 20091008, end: 20091114
  5. DOVOBET [Concomitant]
     Indication: PSORIASIS
     Route: 061
  6. EMOVATE [Concomitant]
     Indication: PSORIASIS
     Route: 061

REACTIONS (2)
  - HAEMORRHAGE [None]
  - OESOPHAGEAL VARICES HAEMORRHAGE [None]
